FAERS Safety Report 5923522-0 (Version None)
Quarter: 2008Q4

REPORT INFORMATION
  Report Type: 
  Country: None (occurrence: None)
  Receive Date: 20081015
  Receipt Date: 20081003
  Transmission Date: 20090506
  Serious: Yes (Other)
  Sender: FDA-Public Use
  Company Number: 220004K08USA

PATIENT
  Age: 18 Year
  Sex: Male

DRUGS (1)
  1. SAIZEN [Suspect]
     Indication: GROWTH HORMONE DEFICIENCY
     Dosage: 2.6, SUBCUTANEOUS
     Route: 058
     Dates: start: 20080601, end: 20080901

REACTIONS (2)
  - NEOPLASM RECURRENCE [None]
  - SPINAL CORD NEOPLASM [None]
